FAERS Safety Report 7832602-4 (Version None)
Quarter: 2011Q4

REPORT INFORMATION
  Report Type: 
  Country: None (occurrence: None)
  Receive Date: 20111024
  Receipt Date: 20111014
  Transmission Date: 20120403
  Serious: No
  Sender: FDA-Public Use
  Company Number: US-BIOGENIDEC-2010BI020978

PATIENT
  Age: 48 Year
  Sex: Female

DRUGS (1)
  1. TYSABRI [Suspect]
     Indication: MULTIPLE SCLEROSIS
     Route: 042
     Dates: start: 20100518

REACTIONS (15)
  - MENTAL IMPAIRMENT [None]
  - MULTIPLE SCLEROSIS [None]
  - ASTHENIA [None]
  - LOSS OF CONTROL OF LEGS [None]
  - SENSATION OF HEAVINESS [None]
  - DEPRESSION [None]
  - EYE PAIN [None]
  - VISUAL IMPAIRMENT [None]
  - CYSTITIS [None]
  - FATIGUE [None]
  - MOBILITY DECREASED [None]
  - GAIT DISTURBANCE [None]
  - BALANCE DISORDER [None]
  - HEADACHE [None]
  - DRUG EFFECT DECREASED [None]
